FAERS Safety Report 13324322 (Version 1)
Quarter: 2017Q1

REPORT INFORMATION
  Report Type: Spontaneous
  Country: FR (occurrence: FR)
  Receive Date: 20170310
  Receipt Date: 20170310
  Transmission Date: 20170428
  Serious: Yes (Other)
  Sender: FDA-Public Use
  Company Number: FR-TEVA-746237ROM

PATIENT
  Age: 64 Year
  Sex: Female

DRUGS (4)
  1. TIORFAN [Interacting]
     Active Substance: RACECADOTRIL
     Indication: DIARRHOEA
     Dosage: TWO DOSES, ONE IN THE EVENING AND ANOTHER THE NEXT MORNING
     Route: 065
  2. POLARAMINE [Concomitant]
     Active Substance: DEXCHLORPHENIRAMINE MALEATE
     Route: 042
  3. RAMIPRIL. [Suspect]
     Active Substance: RAMIPRIL
     Indication: ESSENTIAL HYPERTENSION
     Dosage: 5 MILLIGRAM DAILY;
     Route: 065
  4. SOLU-MEDROL [Concomitant]
     Active Substance: METHYLPREDNISOLONE SODIUM SUCCINATE
     Route: 042

REACTIONS (2)
  - Lip oedema [Unknown]
  - Drug interaction [Unknown]
